FAERS Safety Report 24272048 (Version 3)
Quarter: 2024Q3

REPORT INFORMATION
  Report Type: Spontaneous
  Country: US (occurrence: US)
  Receive Date: 20240902
  Receipt Date: 20240919
  Transmission Date: 20241017
  Serious: No
  Sender: TRIS PHARM
  Company Number: US-TRIS PHARMA, INC.-24US011597

PATIENT

DRUGS (1)
  1. ACETAMINOPHEN\HYDROCODONE BITARTRATE [Suspect]
     Active Substance: ACETAMINOPHEN\HYDROCODONE BITARTRATE
     Indication: Pain
     Dosage: 1 DOSAGE FORM, PRN (EVERY 6 HOURS); ALSO BREAKING THEM TO GET LESS MEDICATION SOMETIMES
     Route: 048
     Dates: start: 20240805, end: 20240818

REACTIONS (8)
  - Illness [Recovered/Resolved]
  - Feeling abnormal [Recovered/Resolved]
  - Therapeutic response changed [Unknown]
  - Product physical issue [Unknown]
  - Product taste abnormal [Unknown]
  - Dizziness [Recovered/Resolved]
  - Nausea [Recovered/Resolved]
  - Drug ineffective [Unknown]

NARRATIVE: CASE EVENT DATE: 20240801
